APPROVED DRUG PRODUCT: SUCRALFATE
Active Ingredient: SUCRALFATE
Strength: 1GM/10ML
Dosage Form/Route: SUSPENSION;ORAL
Application: A212769 | Product #001
Applicant: HIKMA PHARMACEUTICALS USA INC
Approved: Jul 23, 2024 | RLD: No | RS: No | Type: DISCN